FAERS Safety Report 18564408 (Version 1)
Quarter: 2020Q4

REPORT INFORMATION
  Report Type: Spontaneous
  Country: US (occurrence: US)
  Receive Date: 20201130
  Receipt Date: 20201130
  Transmission Date: 20210114
  Serious: Yes (Hospitalization)
  Sender: FDA-Public Use
  Company Number: None

PATIENT
  Sex: Female

DRUGS (4)
  1. FLUTICASONE. [Concomitant]
     Active Substance: FLUTICASONE
  2. LUMIGAN [Concomitant]
     Active Substance: BIMATOPROST
  3. IISINOPRIL [Concomitant]
  4. REPATHA [Suspect]
     Active Substance: EVOLOCUMAB
     Indication: HYPOTHYROIDISM
     Dosage: FREQUENCY: EVERY 2 WEEKS
     Route: 058
     Dates: start: 20181227

REACTIONS (1)
  - COVID-19 [None]
